FAERS Safety Report 7209286-1 (Version None)
Quarter: 2011Q1

REPORT INFORMATION
  Report Type: 
  Country: None (occurrence: None)
  Receive Date: 20110104
  Receipt Date: 20101230
  Transmission Date: 20110831
  Serious: Yes (Hospitalization)
  Sender: FDA-Public Use
  Company Number: B0691567A

PATIENT
  Sex: Female

DRUGS (3)
  1. LEVOTHYROX [Concomitant]
     Indication: HYPOTHYROIDISM
     Dosage: 175MCG PER DAY
     Route: 048
  2. AUGMENTIN [Suspect]
     Indication: PARONYCHIA
     Route: 048
     Dates: start: 20101104, end: 20101104
  3. PYOSTACINE [Suspect]
     Indication: PARONYCHIA
     Route: 048
     Dates: start: 20101104, end: 20101104

REACTIONS (8)
  - VOMITING [None]
  - BRONCHOSPASM [None]
  - URTICARIA [None]
  - HYPOKALAEMIA [None]
  - DYSPNOEA [None]
  - PRURITUS [None]
  - ERYTHEMA [None]
  - BLOOD GLUCOSE INCREASED [None]
